FAERS Safety Report 7180038-4 (Version None)
Quarter: 2010Q4

REPORT INFORMATION
  Report Type: 
  Country: None (occurrence: None)
  Receive Date: 20101209
  Receipt Date: 20101129
  Transmission Date: 20110411
  Serious: Yes (Hospitalization)
  Sender: FDA-Public Use
  Company Number: 2010US004830

PATIENT
  Age: 50 Year
  Sex: Female
  Weight: 110 kg

DRUGS (7)
  1. PROGRAF [Suspect]
     Indication: RENAL TRANSPLANT
     Dosage: 1 MG IN AM, 2 MG IN PM, ORAL
     Route: 048
     Dates: start: 20020927
  2. MYCOPHENOLIC ACID [Concomitant]
  3. PREDNISONE TAB [Concomitant]
  4. AMLODIPINE [Concomitant]
  5. LISINOPRIL [Concomitant]
  6. NOVOLIN 70/30 (INSULIN HUMAN, INSULIN HUMAN INJECTION, ISOPHANE) INJEC [Concomitant]
  7. OMEPRAZOLE [Concomitant]

REACTIONS (2)
  - ECONOMIC PROBLEM [None]
  - TREATMENT NONCOMPLIANCE [None]
